FAERS Safety Report 10885715 (Version 1)
Quarter: 2015Q1

REPORT INFORMATION
  Report Type: Spontaneous
  Country: IT (occurrence: IT)
  Receive Date: 20150304
  Receipt Date: 20150304
  Transmission Date: 20150721
  Serious: Yes (Life-Threatening, Hospitalization, Other)
  Sender: FDA-Public Use
  Company Number: IT-WATSON-2015-04136

PATIENT
  Age: 3 Year
  Sex: Female

DRUGS (1)
  1. RIVASTIGMINE (UNKNOWN) [Suspect]
     Active Substance: RIVASTIGMINE
     Indication: DEMENTIA ALZHEIMER^S TYPE
     Dosage: 1-2 PILLS  SINGLE
     Route: 048

REACTIONS (2)
  - Accidental exposure to product by child [Recovered/Resolved]
  - Cholinergic syndrome [Recovered/Resolved]
